FAERS Safety Report 9790716 (Version 1)
Quarter: 2013Q4

REPORT INFORMATION
  Report Type: Report from Study
  Country: NL (occurrence: NL)
  Receive Date: 20131231
  Receipt Date: 20131231
  Transmission Date: 20140711
  Serious: Yes (Hospitalization)
  Sender: FDA-Public Use
  Company Number: NL-GLAXOSMITHKLINE-B0956570A

PATIENT
  Age: 72 Year
  Sex: 0

DRUGS (2)
  1. PAZOPANIB [Suspect]
     Indication: RENAL CELL CARCINOMA
     Dosage: 800MG PER DAY
     Route: 048
     Dates: start: 20131129
  2. METOCLOPRAMIDE [Concomitant]
     Dosage: 10MG AS REQUIRED
     Route: 048
     Dates: start: 20131205

REACTIONS (1)
  - Dehydration [Recovered/Resolved]
